FAERS Safety Report 4627164-9 (Version None)
Quarter: 2005Q2

REPORT INFORMATION
  Report Type: 
  Country: None (occurrence: None)
  Receive Date: 20050405
  Receipt Date: 20050401
  Transmission Date: 20051028
  Serious: Yes (Hospitalization)
  Sender: FDA-Public Use
  Company Number: FR-GLAXOSMITHKLINE-B0376585A

PATIENT
  Age: 35 Year
  Sex: Female

DRUGS (15)
  1. AUGMENTIN '125' [Suspect]
     Route: 048
     Dates: start: 20040219, end: 20040229
  2. AMOXICILLIN [Suspect]
     Route: 048
     Dates: start: 20040212, end: 20040218
  3. FLIXOTIDE [Concomitant]
     Route: 055
     Dates: start: 20040215, end: 20040219
  4. EXOMUC [Concomitant]
     Route: 048
     Dates: start: 20040215, end: 20040304
  5. LEVOTHYROXINE SODIUM [Concomitant]
     Dosage: 100MCG PER DAY
     Route: 048
  6. XANAX [Concomitant]
     Dosage: .25MG PER DAY
     Route: 048
  7. BRONCHOKOD [Concomitant]
     Dosage: 1TBS TWICE PER DAY
     Route: 048
     Dates: start: 20040208, end: 20040214
  8. PULMICORT [Concomitant]
     Route: 055
     Dates: start: 20040219, end: 20040310
  9. TIORFAN [Concomitant]
     Route: 048
     Dates: start: 20040215, end: 20040219
  10. DIHYDAN [Concomitant]
     Route: 048
     Dates: start: 20040113
  11. HYDROCORTISONE [Concomitant]
     Dosage: 30MG PER DAY
     Route: 048
     Dates: start: 20040101
  12. NEO-MERCAZOLE TAB [Concomitant]
     Dosage: 30MG PER DAY
     Route: 048
     Dates: start: 20031001
  13. FLUDROCORTISONE [Concomitant]
     Route: 048
     Dates: start: 20040101
  14. DIFFU K [Concomitant]
     Route: 065
  15. PYOSTACINE [Concomitant]
     Route: 065

REACTIONS (12)
  - ANGIONEUROTIC OEDEMA [None]
  - BLOOD ALKALINE PHOSPHATASE INCREASED [None]
  - CHOLESTASIS [None]
  - EOSINOPHILIA [None]
  - ERYTHEMA [None]
  - FACE OEDEMA [None]
  - HYPERSENSITIVITY [None]
  - OEDEMA PERIPHERAL [None]
  - PYREXIA [None]
  - RASH PRURITIC [None]
  - SKIN EXFOLIATION [None]
  - TRANSAMINASES INCREASED [None]
